FAERS Safety Report 6152639-3 (Version None)
Quarter: 2009Q2

REPORT INFORMATION
  Report Type: 
  Country: None (occurrence: None)
  Receive Date: 20090413
  Receipt Date: 20090406
  Transmission Date: 20091009
  Serious: Yes (Other)
  Sender: FDA-Public Use
  Company Number: US-BAYER-200916811NA

PATIENT
  Age: 76 Year
  Sex: Male

DRUGS (1)
  1. LEUKINE [Suspect]
     Indication: MYELODYSPLASTIC SYNDROME
     Dates: start: 20090202, end: 20090213

REACTIONS (1)
  - DYSPNOEA [None]
